FAERS Safety Report 9518319 (Version 1)
Quarter: 2013Q1

REPORT INFORMATION
  Report Type: Spontaneous
  Country: US (occurrence: None)
  Receive Date: 20130305
  Receipt Date: 20130305
  Transmission Date: 20140127
  Serious: Yes (Other)
  Sender: FDA-Public Use
  Company Number: 163-21880-12081000

PATIENT
  Age: 67 Year
  Sex: Male

DRUGS (5)
  1. REVLIMID(LENALIDOMIDE) [Suspect]
     Indication: PLASMA CELL MYELOMA
     Dosage: 10 MG, 21 IN 21 D, PO
     Route: 048
     Dates: start: 20100611
  2. IMODIUM A-D (LOPERAMIDE HYDROCHLORIDE) [Concomitant]
  3. LOMOTIL(LOMOTIL) [Concomitant]
  4. COMPLEX(BECOSYM FORTE) [Concomitant]
  5. VITAMINS PLUS (VITAMINS NOS) [Concomitant]

REACTIONS (2)
  - Diarrhoea [None]
  - Paraesthesia [None]
